FAERS Safety Report 7983085-5 (Version None)
Quarter: 2011Q4

REPORT INFORMATION
  Report Type: 
  Country: None (occurrence: None)
  Receive Date: 20111215
  Receipt Date: 20111213
  Transmission Date: 20120403
  Serious: Yes (Death, Hospitalization, Other)
  Sender: FDA-Public Use
  Company Number: ES-B.I. PHARMACEUTICALS,INC./RIDGEFIELD-2011-ES-00286ES

PATIENT
  Sex: Male

DRUGS (3)
  1. HEPARINS [Concomitant]
     Dates: end: 20111001
  2. PRADAXA [Suspect]
     Indication: ATRIAL FIBRILLATION
     Dosage: 220 MG
     Route: 048
     Dates: start: 20111003
  3. FLU-IMUNE [Suspect]

REACTIONS (4)
  - ASPARTATE AMINOTRANSFERASE INCREASED [None]
  - PYREXIA [None]
  - FUNGAL SEPSIS [None]
  - BLOOD BILIRUBIN INCREASED [None]
